FAERS Safety Report 16707135 (Version 1)
Quarter: 2019Q3

REPORT INFORMATION
  Report Type: Spontaneous
  Country: CN (occurrence: CN)
  Receive Date: 20190815
  Receipt Date: 20190815
  Transmission Date: 20191004
  Serious: Yes (Other)
  Sender: FDA-Public Use
  Company Number: CN-PFIZER INC-2019346025

PATIENT
  Age: 72 Year
  Sex: Female
  Weight: 41 kg

DRUGS (9)
  1. ALANYL GLUTAMINE [Concomitant]
     Active Substance: ALANYL GLUTAMINE
     Dosage: 50 ML, 1X/DAY
     Route: 041
     Dates: start: 20181103, end: 20181109
  2. COMPOUND AMINO ACID (18AA) [ALANINE;ALLYSINE;ARGININE;ASPARTIC ACID;CY [Concomitant]
     Dosage: 200 ML, 1X/DAY
     Route: 041
     Dates: start: 20181103, end: 20181109
  3. SERTRALINE HCL [Suspect]
     Active Substance: SERTRALINE HYDROCHLORIDE
     Dosage: 50 MG, 1X/DAY
     Route: 048
     Dates: start: 20181103, end: 20181105
  4. OXYCODONE HYDROCHLORIDE. [Interacting]
     Active Substance: OXYCODONE HYDROCHLORIDE
     Dosage: 40 MG, 2X/DAY
     Route: 048
     Dates: start: 20181103, end: 20181105
  5. GABAPENTIN. [Concomitant]
     Active Substance: GABAPENTIN
     Indication: ANALGESIC THERAPY
     Dosage: 0.1 G, 3X/DAY
     Route: 048
     Dates: start: 20181030, end: 20181101
  6. OXYCODONE HYDROCHLORIDE. [Interacting]
     Active Substance: OXYCODONE HYDROCHLORIDE
     Dosage: 30 MG, 2X/DAY
     Route: 048
     Dates: start: 20181101, end: 20181102
  7. METOCLOPRAMIDE. [Concomitant]
     Active Substance: METOCLOPRAMIDE
     Dosage: 10 MG, 1X/DAY
     Route: 030
     Dates: start: 20181101, end: 20181105
  8. OXYCODONE HYDROCHLORIDE. [Interacting]
     Active Substance: OXYCODONE HYDROCHLORIDE
     Indication: ANALGESIC THERAPY
     Dosage: 20 MG, 2X/DAY (Q12H)
     Route: 048
     Dates: start: 20181030, end: 20181031
  9. DICLOFENAC SODIUM. [Concomitant]
     Active Substance: DICLOFENAC SODIUM
     Indication: ANALGESIC THERAPY
     Dosage: 75 MG, 2X/DAY (Q12H)
     Route: 048
     Dates: start: 20181030, end: 20181109

REACTIONS (2)
  - Drug interaction [Unknown]
  - Serotonin syndrome [Recovering/Resolving]

NARRATIVE: CASE EVENT DATE: 20181103
